FAERS Safety Report 8607468 (Version 2)
Quarter: 2012Q4

REPORT INFORMATION
  Report Type: 
  Country: US (occurrence: US)
  Receive Date: 20120611
  Receipt Date: 20121226
  Transmission Date: 20130627
  Serious: Yes (Hospitalization)
  Sender: FDA-Public Use
  Company Number: US-BAYER-2012-056861

PATIENT
  Age: 23 Year
  Sex: Female
  Weight: 113.38 kg

DRUGS (8)
  1. YAZ [Suspect]
     Indication: CONTRACEPTION
     Dosage: UNK
     Dates: start: 20090227, end: 20100521
  2. ALLEGRA [Concomitant]
     Indication: MULTIPLE ALLERGIES
  3. FLONASE [Concomitant]
     Indication: NASAL CONGESTION
  4. SUDAFED [Concomitant]
     Indication: DIFFICULTY BREATHING
  5. IBUPROFEN [Concomitant]
     Indication: PAIN
  6. ERRIN [Concomitant]
     Dosage: UNK
     Dates: start: 201103
  7. DICLOFENAC [Concomitant]
  8. ALBUTEROL [Concomitant]

REACTIONS (10)
  - Deep vein thrombosis [None]
  - Pulmonary embolism [None]
  - Stress [None]
  - Injury [None]
  - Dyspnoea [None]
  - Pain in extremity [None]
  - Pain [None]
  - Anxiety [None]
  - Anhedonia [None]
  - Mental disorder [None]
